FAERS Safety Report 7049778-1 (Version None)
Quarter: 2010Q4

REPORT INFORMATION
  Report Type: 
  Country: None (occurrence: None)
  Receive Date: 20101018
  Receipt Date: 20100830
  Transmission Date: 20110411
  Serious: Yes (Hospitalization, Other)
  Sender: FDA-Public Use
  Company Number: US-BAYER-201013557NA

PATIENT
  Age: 31 Year
  Sex: Female
  Weight: 88 kg

DRUGS (21)
  1. YAZ [Suspect]
     Indication: OVARIAN CYST
     Dates: start: 20010101, end: 20090101
  2. YASMIN [Suspect]
     Indication: OVARIAN CYST
     Dates: start: 20010101, end: 20090101
  3. ANTIBIOTICS [Concomitant]
  4. MAXALT [Concomitant]
     Dates: start: 20090101
  5. NAPROSYN [Concomitant]
     Indication: PAIN
     Dates: start: 20080101, end: 20090101
  6. HEART MEDICATION (NOS) [Concomitant]
     Dates: start: 19970101
  7. EFFEXOR [Concomitant]
     Indication: DEPRESSION
     Dates: start: 20050101
  8. STEROIDS [Concomitant]
  9. IBUPROFEN [Concomitant]
     Dosage: TOTAL DAILY DOSE: 1800 MG  UNIT DOSE: 600 MG
  10. CYMBALTA [Concomitant]
     Indication: DEPRESSION
     Dates: start: 20070101
  11. FLEXERIL [Concomitant]
     Indication: PAIN
     Dates: start: 20090101, end: 20090101
  12. OXYCODONE HCL [Concomitant]
  13. CYCLOBENZAPRINE [Concomitant]
  14. GUAIFENESIN [Concomitant]
  15. PSEUDOEPHEDRINE [Concomitant]
  16. EFFEXOR XR [Concomitant]
  17. DEMEROL [Concomitant]
  18. FLEXERIL [Concomitant]
     Indication: MUSCLE SPASMS
  19. ATENOLOL [Concomitant]
     Indication: PALPITATIONS
  20. VICODIN [Concomitant]
     Indication: MUSCULOSKELETAL PAIN
  21. RISPERDAL [Concomitant]
     Indication: AFFECTIVE DISORDER

REACTIONS (3)
  - ABDOMINAL PAIN UPPER [None]
  - CHOLECYSTITIS CHRONIC [None]
  - CHOLELITHIASIS [None]
